FAERS Safety Report 17789617 (Version 1)
Quarter: 2020Q2

REPORT INFORMATION
  Report Type: Spontaneous
  Country: US (occurrence: US)
  Receive Date: 20200514
  Receipt Date: 20200514
  Transmission Date: 20200714
  Serious: No
  Sender: FDA-Public Use
  Company Number: None

PATIENT
  Age: 39 Year
  Sex: Male

DRUGS (1)
  1. CHORIONIC GONADOTROPIN [Suspect]
     Active Substance: CHORIOGONADOTROPIN ALFA
     Indication: HYPOPITUITARISM
     Dosage: ?          OTHER STRENGTH:10000U/VL;OTHER DOSE:2000 UNITS;?
     Route: 058
     Dates: start: 20200225

REACTIONS (1)
  - Testicular pain [None]

NARRATIVE: CASE EVENT DATE: 20200401
